FAERS Safety Report 24441030 (Version 2)
Quarter: 2024Q4

REPORT INFORMATION
  Report Type: Report from Study
  Country: EG (occurrence: EG)
  Receive Date: 20241016
  Receipt Date: 20241017
  Transmission Date: 20250114
  Serious: No
  Sender: ROCHE
  Company Number: EG-ROCHE-3466490

PATIENT
  Age: 11 Year
  Sex: Male
  Weight: 40.0 kg

DRUGS (5)
  1. HEMLIBRA [Suspect]
     Active Substance: EMICIZUMAB-KXWH
     Indication: Factor VIII deficiency
     Dosage: HAD SCHEDULED PROPHYLACTIC DOSES ON 30-NOV-2022, 14-DEC-2022, 28-DEC-2022, 11-JAN-2023, 26-JAN-2023,
     Route: 058
     Dates: start: 201909
  2. HEMLIBRA [Suspect]
     Active Substance: EMICIZUMAB-KXWH
     Route: 058
     Dates: start: 20221116
  3. ACETAMINOPHEN [Concomitant]
     Active Substance: ACETAMINOPHEN
     Route: 048
     Dates: start: 20231015
  4. ACETAMINOPHEN [Concomitant]
     Active Substance: ACETAMINOPHEN
     Dosage: STRENGTH: 250MG / 5ML
     Route: 048
     Dates: start: 20231015, end: 20231020
  5. NIFUROXAZIDE [Concomitant]
     Active Substance: NIFUROXAZIDE
     Indication: Diarrhoea
     Dosage: STRENGTH: 220 MG / 5ML
     Route: 048
     Dates: start: 20231015, end: 20231020

REACTIONS (3)
  - Wound [Recovered/Resolved]
  - Fall [Unknown]
  - Haemorrhage [Recovered/Resolved]

NARRATIVE: CASE EVENT DATE: 20231101
